FAERS Safety Report 16242139 (Version 1)
Quarter: 2019Q2

REPORT INFORMATION
  Report Type: Other
  Country: CN (occurrence: CN)
  Receive Date: 20190426
  Receipt Date: 20190426
  Transmission Date: 20190711
  Serious: Yes (Other)
  Sender: FDA-Public Use
  Company Number: CN-JIANGSU HENGRUI MEDICINE CO., LTD.-2066266

PATIENT
  Age: 61 Year
  Sex: Male
  Weight: 52 kg

DRUGS (9)
  1. CAPECITABINE. [Concomitant]
     Active Substance: CAPECITABINE
     Route: 048
     Dates: start: 20190226, end: 20190311
  2. GLUCOSE (DEXTROSE MONOHYDRATE) [Concomitant]
     Active Substance: DEXTROSE MONOHYDRATE
     Route: 041
     Dates: start: 20190226, end: 20190226
  3. GLUCOSE (DEXTROSE MONOHYDRATE) [Concomitant]
     Active Substance: DEXTROSE MONOHYDRATE
     Route: 041
     Dates: start: 20190320, end: 20190320
  4. OXALIPLATIN. [Suspect]
     Active Substance: OXALIPLATIN
     Route: 041
     Dates: start: 20190201, end: 20190201
  5. GLUCOSE (DEXTROSE MONOHYDRATE) [Concomitant]
     Active Substance: DEXTROSE MONOHYDRATE
     Route: 041
     Dates: start: 20190201, end: 20190201
  6. OXALIPLATIN. [Suspect]
     Active Substance: OXALIPLATIN
     Route: 041
     Dates: start: 20190226, end: 20190226
  7. CAPECITABINE. [Concomitant]
     Active Substance: CAPECITABINE
     Route: 048
     Dates: start: 20190201, end: 20190214
  8. OXALIPLATIN INJECTION USP, 5 MG/ML, PACKAGED IN 50 MG/10 ML AND 100 MG [Suspect]
     Active Substance: OXALIPLATIN
     Indication: CHEMOTHERAPY
     Route: 041
     Dates: start: 20190320, end: 20190320
  9. CAPECITABINE. [Concomitant]
     Active Substance: CAPECITABINE
     Route: 048
     Dates: start: 20190320, end: 20190402

REACTIONS (1)
  - Electrocardiogram abnormal [Not Recovered/Not Resolved]

NARRATIVE: CASE EVENT DATE: 20190414
